FAERS Safety Report 16619260 (Version 1)
Quarter: 2019Q3

REPORT INFORMATION
  Report Type: Spontaneous
  Country: US (occurrence: US)
  Receive Date: 20190723
  Receipt Date: 20190723
  Transmission Date: 20191004
  Serious: No
  Sender: FDA-Public Use
  Company Number: US-MYLANLABS-2019M1064094

PATIENT
  Age: 56 Year
  Sex: Female
  Weight: 65.76 kg

DRUGS (3)
  1. GABAPENTIN. [Concomitant]
     Active Substance: GABAPENTIN
  2. TRAMADOL. [Concomitant]
     Active Substance: TRAMADOL
  3. LIDOCAINE PATCH [Suspect]
     Active Substance: LIDOCAINE
     Indication: CHEST PAIN
     Dosage: UNK
     Route: 003
     Dates: start: 20190503, end: 2019

REACTIONS (3)
  - Product adhesion issue [Unknown]
  - Off label use [Not Recovered/Not Resolved]
  - Product quality issue [Unknown]

NARRATIVE: CASE EVENT DATE: 20190503
